FAERS Safety Report 24083453 (Version 1)
Quarter: 2024Q3

REPORT INFORMATION
  Report Type: Spontaneous
  Country: US (occurrence: None)
  Receive Date: 20240711
  Receipt Date: 20240711
  Transmission Date: 20241017
  Serious: Yes (Hospitalization)
  Sender: Public
  Company Number: None

PATIENT
  Sex: Female

DRUGS (3)
  1. CARBIDOPA\LEVODOPA [Suspect]
     Active Substance: CARBIDOPA\LEVODOPA
     Indication: Parkinson^s disease
     Dosage: TAKE 1 TABLET BY MOUTH3 TIMES DAILY???
     Route: 048
     Dates: start: 202405
  2. NUPLAZID [Concomitant]
     Active Substance: PIMAVANSERIN TARTRATE
  3. NOURIANZ [Concomitant]
     Active Substance: ISTRADEFYLLINE

REACTIONS (2)
  - Therapy change [None]
  - Therapy cessation [None]
